FAERS Safety Report 13939585 (Version 1)
Quarter: 2017Q3

REPORT INFORMATION
  Report Type: Spontaneous
  Country: US (occurrence: US)
  Receive Date: 20170906
  Receipt Date: 20170906
  Transmission Date: 20171127
  Serious: No
  Sender: FDA-Public Use
  Company Number: US-PFIZER INC-2017382467

PATIENT
  Age: 34 Year
  Sex: Female

DRUGS (3)
  1. SUBOXONE [Suspect]
     Active Substance: BUPRENORPHINE HYDROCHLORIDE\NALOXONE HYDROCHLORIDE
     Dosage: UNK
     Dates: start: 20170628
  2. SERTRALINE HCL [Suspect]
     Active Substance: SERTRALINE HYDROCHLORIDE
     Dosage: UNK
     Dates: start: 20170628, end: 20170814
  3. XANAX [Suspect]
     Active Substance: ALPRAZOLAM
     Dosage: 3 MG, UNK (THREE 1 MG THAT DAY)

REACTIONS (2)
  - Prescription drug used without a prescription [Unknown]
  - Drug screen positive [Not Recovered/Not Resolved]
